FAERS Safety Report 8292299-9 (Version None)
Quarter: 2012Q2

REPORT INFORMATION
  Report Type: 
  Country: None (occurrence: None)
  Receive Date: 20120417
  Receipt Date: 20120413
  Transmission Date: 20120825
  Serious: Yes (Hospitalization, Other)
  Sender: FDA-Public Use
  Company Number: PHHY2011DE22511

PATIENT
  Sex: Female
  Weight: 79 kg

DRUGS (9)
  1. TORSEMIDE [Concomitant]
     Dosage: 10 MG
     Route: 048
  2. BISOPROLOL FUMARATE [Suspect]
     Dosage: 10 MG, PER DAY
     Route: 048
     Dates: start: 20070101
  3. FUROSEMIDE [Concomitant]
     Dosage: 40 MG, PER DAY
     Route: 048
     Dates: start: 20100324, end: 20120411
  4. LISINOPRIL [Concomitant]
     Indication: HYPERTENSION
     Dosage: 10 MG, PER DAY
     Route: 048
     Dates: start: 20100910
  5. ANTICOAGULANTS [Concomitant]
     Route: 048
  6. CALCIUM CHANNEL BLOCKERS [Concomitant]
  7. RASILEZ [Suspect]
     Indication: HYPERTENSION
     Dosage: 300 MG, PER DAY
     Route: 048
     Dates: start: 20090212, end: 20100313
  8. FUROSEMIDE W/SPIRONOLACTONE [Suspect]
     Route: 048
     Dates: start: 20120411
  9. BETA BLOCKING AGENTS [Concomitant]

REACTIONS (7)
  - DYSPNOEA [None]
  - ARRHYTHMIA [None]
  - MITRAL VALVE INCOMPETENCE [None]
  - OEDEMA [None]
  - CARDIAC FAILURE [None]
  - BLOOD PRESSURE DECREASED [None]
  - RENAL FAILURE CHRONIC [None]
